FAERS Safety Report 13818589 (Version 4)
Quarter: 2018Q1

REPORT INFORMATION
  Report Type: Report from Study
  Country: US (occurrence: US)
  Receive Date: 20170731
  Receipt Date: 20180125
  Transmission Date: 20180508
  Serious: No
  Sender: FDA-Public Use
  Company Number: US-AMGEN-USASL2017106797

PATIENT
  Age: 64 Year
  Sex: Female

DRUGS (1)
  1. REPATHA [Suspect]
     Active Substance: EVOLOCUMAB
     Indication: BLOOD CHOLESTEROL INCREASED
     Dosage: 140 MG/ML, UNK
     Route: 058
     Dates: start: 20160921, end: 20160921

REACTIONS (1)
  - Adverse reaction [Recovered/Resolved]

NARRATIVE: CASE EVENT DATE: 20160921
